FAERS Safety Report 8869189 (Version 1)
Quarter: 2012Q4

REPORT INFORMATION
  Report Type: Spontaneous
  Country: FR (occurrence: None)
  Receive Date: 20121024
  Receipt Date: 20121024
  Transmission Date: 20130627
  Serious: Yes (Life-Threatening)
  Sender: FDA-Public Use
  Company Number: DSA_60299_2012

PATIENT
  Age: 39 Year
  Sex: Female

DRUGS (4)
  1. FLAGYL [Suspect]
     Dosage: (DF Oral)
     Route: 048
     Dates: end: 20120917
  2. KALETRA [Suspect]
     Dosage: (DF Oral)
     Route: 048
     Dates: end: 20120917
  3. COMBIVIR [Suspect]
     Dosage: (DF ORal)
     Route: 048
     Dates: end: 20120917
  4. BICOLYPTOL [Suspect]
     Dosage: (DF Oral)
     Route: 048
     Dates: end: 20120917

REACTIONS (2)
  - Stevens-Johnson syndrome [None]
  - Hepatocellular injury [None]
